FAERS Safety Report 25588351 (Version 1)
Quarter: 2025Q3

REPORT INFORMATION
  Report Type: Spontaneous
  Country: US (occurrence: US)
  Receive Date: 20250722
  Receipt Date: 20250722
  Transmission Date: 20251020
  Serious: No
  Sender: ENDO
  Company Number: US-ENDO USA, INC.-2025-000705

PATIENT
  Sex: Male

DRUGS (15)
  1. EDEX [Suspect]
     Active Substance: ALPROSTADIL
     Indication: Erectile dysfunction
     Route: 051
  2. EDEX [Suspect]
     Active Substance: ALPROSTADIL
     Indication: Erectile dysfunction
     Route: 051
  3. EDEX [Suspect]
     Active Substance: ALPROSTADIL
     Indication: Erectile dysfunction
     Route: 051
  4. EDEX [Suspect]
     Active Substance: ALPROSTADIL
     Indication: Erectile dysfunction
     Route: 051
  5. EDEX [Suspect]
     Active Substance: ALPROSTADIL
     Indication: Erectile dysfunction
     Route: 051
  6. EDEX [Suspect]
     Active Substance: ALPROSTADIL
     Route: 051
     Dates: start: 202412
  7. EDEX [Suspect]
     Active Substance: ALPROSTADIL
     Route: 051
     Dates: start: 202412
  8. EDEX [Suspect]
     Active Substance: ALPROSTADIL
     Route: 051
     Dates: start: 202412
  9. EDEX [Suspect]
     Active Substance: ALPROSTADIL
     Route: 051
     Dates: start: 202412
  10. EDEX [Suspect]
     Active Substance: ALPROSTADIL
     Route: 051
     Dates: start: 202412
  11. EDEX [Suspect]
     Active Substance: ALPROSTADIL
     Route: 051
  12. EDEX [Suspect]
     Active Substance: ALPROSTADIL
     Route: 051
  13. EDEX [Suspect]
     Active Substance: ALPROSTADIL
     Route: 051
  14. EDEX [Suspect]
     Active Substance: ALPROSTADIL
     Route: 051
  15. EDEX [Suspect]
     Active Substance: ALPROSTADIL
     Route: 051

REACTIONS (1)
  - Drug ineffective [Unknown]
